FAERS Safety Report 16547795 (Version 1)
Quarter: 2019Q3

REPORT INFORMATION
  Report Type: Spontaneous
  Country: US (occurrence: US)
  Receive Date: 20190709
  Receipt Date: 20190709
  Transmission Date: 20191004
  Serious: No
  Sender: FDA-Public Use
  Company Number: US-SA-2019SA182277

PATIENT
  Sex: Female

DRUGS (1)
  1. CAPSAICIN. [Suspect]
     Active Substance: CAPSAICIN
     Indication: SLEEP DISORDER

REACTIONS (2)
  - Erythema [Unknown]
  - Burning sensation [Unknown]
